FAERS Safety Report 25784839 (Version 1)
Quarter: 2025Q3

REPORT INFORMATION
  Report Type: Spontaneous
  Country: US (occurrence: US)
  Receive Date: 20250910
  Receipt Date: 20250910
  Transmission Date: 20251020
  Serious: Yes (Hospitalization, Other)
  Sender: AUROBINDO
  Company Number: US-MLMSERVICE-20250828-PI622077-00038-2

PATIENT
  Age: 16 Year
  Sex: Male
  Weight: 50.3 kg

DRUGS (4)
  1. ACETYLCYSTEINE [Suspect]
     Active Substance: ACETYLCYSTEINE
     Indication: Toxicity to various agents
     Route: 065
  2. IBUPROFEN [Concomitant]
     Active Substance: IBUPROFEN
     Indication: Cough
     Route: 065
  3. IBUPROFEN [Concomitant]
     Active Substance: IBUPROFEN
     Indication: Pyrexia
  4. IBUPROFEN [Concomitant]
     Active Substance: IBUPROFEN
     Indication: Chills

REACTIONS (1)
  - Anaphylactoid reaction [Recovered/Resolved]
